FAERS Safety Report 24653419 (Version 2)
Quarter: 2024Q4

REPORT INFORMATION
  Report Type: Spontaneous
  Country: US (occurrence: US)
  Receive Date: 20241122
  Receipt Date: 20241126
  Transmission Date: 20250115
  Serious: Yes (Other)
  Sender: PFIZER
  Company Number: US-MLMSERVICE-20241114-PI254512-00249-5

PATIENT
  Age: 52 Year
  Sex: Female

DRUGS (1)
  1. OXALIPLATIN [Suspect]
     Active Substance: OXALIPLATIN
     Indication: Colon cancer
     Dosage: INFUSION
     Route: 042

REACTIONS (2)
  - Serpentine supravenous hyperpigmentation [Recovered/Resolved]
  - Rash erythematous [Recovered/Resolved]
